FAERS Safety Report 22115511 (Version 1)
Quarter: 2023Q1

REPORT INFORMATION
  Report Type: Spontaneous
  Country: US (occurrence: US)
  Receive Date: 20230320
  Receipt Date: 20230320
  Transmission Date: 20230418
  Serious: Yes (Disabling)
  Sender: FDA-Public Use
  Company Number: US-ELI_LILLY_AND_COMPANY-US202303006498

PATIENT
  Sex: Female

DRUGS (2)
  1. OLUMIANT [Suspect]
     Active Substance: BARICITINIB
     Indication: Ocular pemphigoid
     Dosage: 2 MG, DAILY
     Route: 048
  2. OLUMIANT [Suspect]
     Active Substance: BARICITINIB
     Dosage: 2 MG, DAILY
     Route: 048

REACTIONS (6)
  - Blindness [Unknown]
  - COVID-19 [Unknown]
  - Rosacea [Unknown]
  - Eye irritation [Unknown]
  - Off label use [Unknown]
  - Abdominal discomfort [Unknown]
